FAERS Safety Report 12548101 (Version 4)
Quarter: 2017Q3

REPORT INFORMATION
  Report Type: Report from Study
  Country: AR (occurrence: AR)
  Receive Date: 20160712
  Receipt Date: 20170808
  Transmission Date: 20171127
  Serious: Yes (Hospitalization, Other)
  Sender: FDA-Public Use
  Company Number: PHHY2016AR094273

PATIENT
  Age: 70 Year
  Sex: Male

DRUGS (4)
  1. EXFORGE [Suspect]
     Active Substance: AMLODIPINE BESYLATE\VALSARTAN
     Indication: HYPERTENSION
     Route: 065
  2. EXFORGE [Suspect]
     Active Substance: AMLODIPINE BESYLATE\VALSARTAN
     Dosage: 0.5 DF, UNK
     Route: 065
  3. EXFORGE [Suspect]
     Active Substance: AMLODIPINE BESYLATE\VALSARTAN
     Indication: HYPERTENSION
     Dosage: 1 DF, QD (AMLODIPINE 5MG, HYDROCHLOROTHIAZIDE 12.5MG, VALSARTAN 160MG) (1 AND HALF YEAR AGO APPROX.)
     Route: 065
  4. EXFORGE [Suspect]
     Active Substance: AMLODIPINE BESYLATE\VALSARTAN
     Dosage: 1 DF, QD  (AMLODIPINE 5MG, HYDROCHLOROTHIAZIDE 12.5MG, VALSARTAN 160MG)
     Route: 065
     Dates: start: 20160627, end: 201607

REACTIONS (18)
  - Blood pressure abnormal [Recovering/Resolving]
  - Libido disorder [Recovering/Resolving]
  - Urinary retention [Recovering/Resolving]
  - Dizziness [Recovering/Resolving]
  - Nervous system disorder [Recovering/Resolving]
  - Balance disorder [Recovering/Resolving]
  - Logorrhoea [Recovering/Resolving]
  - Agitation [Unknown]
  - Nervousness [Recovering/Resolving]
  - Pneumonia [Recovered/Resolved]
  - Dyspnoea [Unknown]
  - Wrong technique in product usage process [Recovering/Resolving]
  - Blood testosterone decreased [Unknown]
  - Drug ineffective [Recovering/Resolving]
  - Influenza [Recovered/Resolved]
  - Blood pressure decreased [Recovered/Resolved]
  - Vertigo [Recovered/Resolved]
  - Cardiac disorder [Unknown]

NARRATIVE: CASE EVENT DATE: 201606
